FAERS Safety Report 10205123 (Version 1)
Quarter: 2014Q2

REPORT INFORMATION
  Report Type: Spontaneous
  Country: FR (occurrence: FR)
  Receive Date: 20140529
  Receipt Date: 20140529
  Transmission Date: 20141212
  Serious: Yes (Hospitalization)
  Sender: FDA-Public Use
  Company Number: FR-ASTRAZENECA-2014SE35978

PATIENT
  Age: 82 Year
  Sex: Female

DRUGS (8)
  1. INEXIUM [Suspect]
     Route: 048
     Dates: start: 20131231, end: 20140109
  2. PANTOPRAZOLE [Suspect]
     Route: 048
     Dates: start: 2008, end: 20131231
  3. LYRICA [Concomitant]
     Dosage: 1.25 DF AT MORNING AND 1.5 DF AT NIGHT
  4. LOSARTAN [Concomitant]
  5. XARELTO [Concomitant]
  6. CORDARONE [Concomitant]
     Dosage: 4 DAYS A WEEK
  7. CALCIDIA [Concomitant]
     Dosage: 1.54
  8. UN ALPHA [Concomitant]
     Dosage: 0.5

REACTIONS (6)
  - Hypokalaemia [Recovering/Resolving]
  - Hypocalcaemia [Recovering/Resolving]
  - Cystitis [Unknown]
  - Klebsiella infection [Unknown]
  - Hypoparathyroidism [Unknown]
  - Hypomagnesaemia [Recovering/Resolving]
